FAERS Safety Report 14669515 (Version 1)
Quarter: 2018Q1

REPORT INFORMATION
  Report Type: Spontaneous
  Country: US (occurrence: US)
  Receive Date: 20180321
  Receipt Date: 20180321
  Transmission Date: 20180509
  Serious: No
  Sender: FDA-Public Use
  Company Number: None

PATIENT
  Age: 65 Year
  Sex: Female

DRUGS (11)
  1. ONDANSETRON [Concomitant]
     Active Substance: ONDANSETRON
  2. IBRANCE [Suspect]
     Active Substance: PALBOCICLIB
     Indication: BREAST CANCER FEMALE
     Route: 048
     Dates: start: 20151123
  3. LETROZOLE. [Concomitant]
     Active Substance: LETROZOLE
  4. OXYCODONE [Concomitant]
     Active Substance: OXYCODONE
  5. BISAC-EVAC [Concomitant]
     Active Substance: BISACODYL
  6. CALCIFEROL [Concomitant]
     Active Substance: ERGOCALCIFEROL
  7. LORAZEPAM. [Concomitant]
     Active Substance: LORAZEPAM
  8. MORPHINE [Concomitant]
     Active Substance: MORPHINE
  9. PROCHLORPER [Concomitant]
  10. ACEPHEN [Concomitant]
     Active Substance: ACETAMINOPHEN
  11. HYOSCAMINE [Concomitant]

REACTIONS (1)
  - Death [None]
